FAERS Safety Report 12566396 (Version 2)
Quarter: 2016Q3

REPORT INFORMATION
  Report Type: Spontaneous
  Country: BR (occurrence: BR)
  Receive Date: 20160718
  Receipt Date: 20160728
  Transmission Date: 20161109
  Serious: Yes (Death, Hospitalization)
  Sender: FDA-Public Use
  Company Number: BR-PFIZER INC-2016342022

PATIENT
  Age: 85 Year
  Sex: Female
  Weight: 80 kg

DRUGS (9)
  1. AAS INFANTIL [Concomitant]
     Active Substance: ASPIRIN
     Indication: COAGULOPATHY
     Dosage: 1 TABLET, DAILY
     Route: 048
     Dates: start: 1996
  2. RESPIDON [Concomitant]
     Active Substance: RISPERIDONE
     Indication: RELAXATION THERAPY
     Dosage: 1 TABLET AT NIGHT
     Route: 048
  3. PROLOPA [Concomitant]
     Active Substance: BENSERAZIDE\LEVODOPA
     Indication: PARKINSON^S DISEASE
     Dosage: 1 TABLET, 2X/DAY
     Route: 048
     Dates: start: 2008
  4. EXELON [Concomitant]
     Active Substance: RIVASTIGMINE TARTRATE
     Indication: DEMENTIA ALZHEIMER^S TYPE
     Dosage: 1 TABLET, 2X/DAY
     Route: 048
     Dates: start: 2006
  5. CLONAZEPAM. [Concomitant]
     Active Substance: CLONAZEPAM
     Dosage: 1 TABLET, DAILY
     Route: 048
     Dates: start: 2006
  6. DILTIAZEM. [Concomitant]
     Active Substance: DILTIAZEM
     Dosage: 1 TABLET, 2X/DAY
     Dates: start: 2006
  7. ATORVASTATIN [Concomitant]
     Active Substance: ATORVASTATIN
     Dosage: 1 TABLET IN THE MORNING
     Route: 048
  8. XALATAN [Suspect]
     Active Substance: LATANOPROST
     Indication: EYE LUBRICATION THERAPY
     Dosage: AT 1 DROP IN BOTH EYES , AT NIGHT
     Route: 047
     Dates: start: 2006
  9. BAMIFIX [Concomitant]
     Active Substance: BAMIFYLLINE HYDROCHLORIDE
     Dosage: 1 TABLET, 2X/DAY
     Route: 048
     Dates: start: 2006

REACTIONS (7)
  - Chronic kidney disease [Fatal]
  - Hyperkalaemia [Fatal]
  - Atrial fibrillation [Fatal]
  - Pneumonia [Fatal]
  - Product use issue [Not Recovered/Not Resolved]
  - General physical health deterioration [Not Recovered/Not Resolved]
  - Respiratory failure [Not Recovered/Not Resolved]

NARRATIVE: CASE EVENT DATE: 201605
